FAERS Safety Report 6348320-8 (Version None)
Quarter: 2009Q3

REPORT INFORMATION
  Report Type: 
  Country: None (occurrence: None)
  Receive Date: 20090908
  Receipt Date: 20090820
  Transmission Date: 20100115
  Serious: Yes (Death, Hospitalization)
  Sender: FDA-Public Use
  Company Number: 2009AL003882

PATIENT
  Age: 59 Year
  Sex: Male

DRUGS (1)
  1. DIGOXIN [Suspect]
     Dosage: PO
     Route: 048

REACTIONS (19)
  - ABDOMINAL DISCOMFORT [None]
  - ACCIDENT [None]
  - ANHEDONIA [None]
  - ANKLE FRACTURE [None]
  - AORTIC ANEURYSM [None]
  - CARDIAC ARREST [None]
  - CORONARY ARTERY DISEASE [None]
  - DYSPEPSIA [None]
  - ECONOMIC PROBLEM [None]
  - EMOTIONAL DISORDER [None]
  - FALL [None]
  - HYPERTENSION [None]
  - ILL-DEFINED DISORDER [None]
  - INJURY [None]
  - JOINT DISLOCATION [None]
  - MENTAL DISORDER [None]
  - PAIN [None]
  - ROAD TRAFFIC ACCIDENT [None]
  - TYPE 2 DIABETES MELLITUS [None]
